FAERS Safety Report 5283509-0 (Version None)
Quarter: 2007Q1

REPORT INFORMATION
  Report Type: 
  Country: None (occurrence: None)
  Receive Date: 20070328
  Receipt Date: 20070328
  Transmission Date: 20070707
  Serious: Yes (Other)
  Sender: FDA-Public Use
  Company Number: None

PATIENT
  Age: 87 Year
  Sex: Male
  Weight: 103.4 kg

DRUGS (4)
  1. CILOSTAZOL [Suspect]
  2. SIMVASTATIN [Concomitant]
  3. ALLOPURINOL [Concomitant]
  4. ENALAPRIL MALEATE [Concomitant]

REACTIONS (1)
  - VERTIGO [None]
